FAERS Safety Report 15731800 (Version 2)
Quarter: 2019Q3

REPORT INFORMATION
  Report Type: Spontaneous
  Country: US (occurrence: US)
  Receive Date: 20181217
  Receipt Date: 20190702
  Transmission Date: 20191004
  Serious: No
  Sender: FDA-Public Use
  Company Number: US-MYLANLABS-2018M1090716

PATIENT
  Age: 15 Year
  Sex: Female

DRUGS (1)
  1. ECONTRA EZ [Suspect]
     Active Substance: LEVONORGESTREL
     Indication: PRODUCT USED FOR UNKNOWN INDICATION
     Dosage: UNK
     Route: 065

REACTIONS (2)
  - Vaginal haemorrhage [Unknown]
  - Vulvovaginal pain [Unknown]
